FAERS Safety Report 25703641 (Version 1)
Quarter: 2025Q3

REPORT INFORMATION
  Report Type: Spontaneous
  Country: EU (occurrence: EU)
  Receive Date: 20250820
  Receipt Date: 20250820
  Transmission Date: 20251020
  Serious: Yes (Hospitalization, Other)
  Sender: SANOFI AVENTIS
  Company Number: EU-SA-2018SA034836

PATIENT
  Age: 56 Year
  Sex: Female

DRUGS (14)
  1. DOCETAXEL [Suspect]
     Active Substance: DOCETAXEL
     Indication: Lung adenocarcinoma
     Route: 065
     Dates: start: 201412, end: 201412
  2. DOCETAXEL [Suspect]
     Active Substance: DOCETAXEL
     Route: 065
  3. DOCETAXEL [Suspect]
     Active Substance: DOCETAXEL
     Route: 065
     Dates: start: 201507, end: 201507
  4. NINTEDANIB [Suspect]
     Active Substance: NINTEDANIB
     Indication: Lung adenocarcinoma
     Dosage: 200 MG, BID
     Route: 065
     Dates: start: 201412
  5. NINTEDANIB [Suspect]
     Active Substance: NINTEDANIB
     Dosage: 200 MG, BID
     Route: 065
     Dates: end: 201507
  6. NINTEDANIB [Suspect]
     Active Substance: NINTEDANIB
     Dosage: 100 MG, BID (100 MG 2 TABLETS 2 TIMES A DAY, (CYCLICAL))
     Dates: start: 201412, end: 201507
  7. CISPLATIN [Suspect]
     Active Substance: CISPLATIN
     Indication: Lung adenocarcinoma
  8. CISPLATIN [Suspect]
     Active Substance: CISPLATIN
  9. CRIZOTINIB [Suspect]
     Active Substance: CRIZOTINIB
     Indication: Lung adenocarcinoma
     Dates: start: 201510
  10. PEMETREXED [Suspect]
     Active Substance: PEMETREXED
     Indication: Lung adenocarcinoma
  11. PEMETREXED [Suspect]
     Active Substance: PEMETREXED
  12. VINORELBINE [Suspect]
     Active Substance: VINORELBINE TARTRATE
     Indication: Lung adenocarcinoma
  13. CARBOPLATIN [Concomitant]
     Active Substance: CARBOPLATIN
     Indication: Lung adenocarcinoma
     Dates: start: 201507
  14. GEMCITABINE [Concomitant]
     Active Substance: GEMCITABINE
     Indication: Lung adenocarcinoma
     Dates: start: 201507

REACTIONS (12)
  - Hypothyroidism [Recovering/Resolving]
  - Ocular discomfort [Recovering/Resolving]
  - Angina pectoris [Unknown]
  - Hepatotoxicity [Recovered/Resolved]
  - Hepatic enzyme increased [Recovered/Resolved]
  - Liver disorder [Recovered/Resolved]
  - Disease progression [Unknown]
  - Febrile neutropenia [Unknown]
  - Oesophagitis [Unknown]
  - Mucosal inflammation [Unknown]
  - Oedema peripheral [Recovering/Resolving]
  - Transaminases increased [Recovered/Resolved]

NARRATIVE: CASE EVENT DATE: 20150101
